FAERS Safety Report 7794692-7 (Version None)
Quarter: 2011Q4

REPORT INFORMATION
  Report Type: 
  Country: None (occurrence: None)
  Receive Date: 20111004
  Receipt Date: 20110922
  Transmission Date: 20120403
  Serious: Yes (Hospitalization)
  Sender: FDA-Public Use
  Company Number: BR-SANOFI-AVENTIS-2011SA044434

PATIENT
  Age: 86 Year
  Sex: Male
  Weight: 60 kg

DRUGS (6)
  1. ASPIRIN [Concomitant]
  2. CAPTOPRIL [Concomitant]
  3. WARFARIN SODIUM [Concomitant]
     Dosage: 30 MG WEEKLY
  4. DRONEDARONE HCL [Suspect]
     Indication: ATRIAL FIBRILLATION
     Route: 048
     Dates: start: 20110510
  5. ATENOLOL [Concomitant]
  6. FUROSEMIDE [Concomitant]

REACTIONS (1)
  - BRONCHOPNEUMONIA [None]
